FAERS Safety Report 11720623 (Version 1)
Quarter: 2015Q4

REPORT INFORMATION
  Report Type: Spontaneous
  Country: TW (occurrence: TW)
  Receive Date: 20151110
  Receipt Date: 20151110
  Transmission Date: 20160304
  Serious: Yes (Hospitalization, Other)
  Sender: FDA-Public Use
  Company Number: TW-SA-2015SA169076

PATIENT
  Age: 31 Year
  Sex: Female
  Weight: 42 kg

DRUGS (5)
  1. ALLOPURINOL. [Suspect]
     Active Substance: ALLOPURINOL
     Indication: GOUT
     Route: 065
  2. FUROSEMIDE. [Suspect]
     Active Substance: FUROSEMIDE
     Indication: WEIGHT CONTROL
     Dosage: 120 TO 400 MG/DAY
     Route: 065
  3. PREDNISOLONE. [Suspect]
     Active Substance: PREDNISOLONE
     Indication: GOUT
     Route: 065
  4. FUROSEMIDE. [Suspect]
     Active Substance: FUROSEMIDE
     Indication: WEIGHT CONTROL
     Dosage: 120 TO 400 MG/DAY
     Route: 065
  5. COLCHICINE. [Suspect]
     Active Substance: COLCHICINE
     Indication: GOUT
     Route: 065

REACTIONS (30)
  - Tubulointerstitial nephritis [Recovered/Resolved]
  - Blood pressure diastolic decreased [Unknown]
  - Nephrolithiasis [Unknown]
  - Nephrocalcinosis [Unknown]
  - Kidney fibrosis [Recovered/Resolved]
  - Drug withdrawal syndrome [Unknown]
  - Swelling face [Unknown]
  - Inappropriate schedule of drug administration [Unknown]
  - Hyperuricaemia [Unknown]
  - Hypovolaemia [Unknown]
  - Renal tubular atrophy [Recovered/Resolved]
  - Renal injury [Recovered/Resolved]
  - Blood urea increased [Recovered/Resolved]
  - Hypokalaemia [Recovered/Resolved]
  - Malaise [Recovered/Resolved]
  - Blood creatinine increased [Recovered/Resolved]
  - Gouty arthritis [Unknown]
  - Drug dependence [Recovered/Resolved]
  - Renal impairment [Recovered/Resolved]
  - Renal tubular necrosis [Recovered/Resolved]
  - Intentional product misuse [Unknown]
  - Pyelonephritis acute [Unknown]
  - Fluid retention [Unknown]
  - Skin turgor decreased [Unknown]
  - Weight increased [Unknown]
  - Sodium retention [Unknown]
  - Peripheral swelling [Unknown]
  - Glomerular filtration rate decreased [Recovered/Resolved]
  - Oedema [Recovered/Resolved]
  - Chronic kidney disease [Recovered/Resolved]
